FAERS Safety Report 23647213 (Version 2)
Quarter: 2024Q2

REPORT INFORMATION
  Report Type: Report from Study
  Country: US (occurrence: US)
  Receive Date: 20240319
  Receipt Date: 20240404
  Transmission Date: 20240716
  Serious: Yes (Congenital Anomaly)
  Sender: FDA-Public Use
  Company Number: US-AMGEN-USANI2024053915

PATIENT
  Age: 52 Year
  Sex: Female

DRUGS (5)
  1. EVOLOCUMAB [Suspect]
     Active Substance: EVOLOCUMAB
     Indication: Hypercholesterolaemia
     Dosage: 50 MILLIGRAM PER MILLILITRE
     Route: 065
     Dates: start: 20230101, end: 20231001
  2. EVOLOCUMAB [Suspect]
     Active Substance: EVOLOCUMAB
     Dosage: DOSE REDUCED
     Route: 065
  3. VYTORIN [Concomitant]
     Active Substance: EZETIMIBE\SIMVASTATIN
     Dosage: UNK
  4. COLESEVELAM [Concomitant]
     Active Substance: COLESEVELAM
     Dosage: UNK
  5. CHOLESTYRAMINE [Concomitant]
     Active Substance: CHOLESTYRAMINE

REACTIONS (1)
  - Tachycardia [Not Recovered/Not Resolved]

NARRATIVE: CASE EVENT DATE: 20230101
